FAERS Safety Report 23603346 (Version 1)
Quarter: 2024Q1

REPORT INFORMATION
  Report Type: Spontaneous
  Country: US (occurrence: US)
  Receive Date: 20240307
  Receipt Date: 20240307
  Transmission Date: 20240409
  Serious: No
  Sender: FDA-Public Use
  Company Number: US-TEVA-VS-3138085

PATIENT

DRUGS (1)
  1. ALVIMOPAN [Suspect]
     Active Substance: ALVIMOPAN
     Route: 065

REACTIONS (1)
  - Product dispensing error [Unknown]
